FAERS Safety Report 25377976 (Version 3)
Quarter: 2025Q3

REPORT INFORMATION
  Report Type: Report from Study
  Country: CA (occurrence: CA)
  Receive Date: 20250530
  Receipt Date: 20250702
  Transmission Date: 20251021
  Serious: Yes (Other)
  Sender: TAKEDA
  Company Number: CA-TAKEDA-2025TUS043354

PATIENT
  Sex: Male

DRUGS (9)
  1. VEDOLIZUMAB [Suspect]
     Active Substance: VEDOLIZUMAB
     Indication: Colitis ulcerative
  2. VEDOLIZUMAB [Suspect]
     Active Substance: VEDOLIZUMAB
     Dosage: 300 MILLIGRAM, Q4WEEKS
     Dates: start: 20190923
  3. VEDOLIZUMAB [Suspect]
     Active Substance: VEDOLIZUMAB
     Dosage: 300 MILLIGRAM, Q4WEEKS
  4. VITAMIN D [Concomitant]
     Active Substance: VITAMIN D NOS
  5. ROSUVASTATIN [Concomitant]
     Active Substance: ROSUVASTATIN
  6. WARFARIN [Concomitant]
     Active Substance: WARFARIN
  7. PREDNISONE [Concomitant]
     Active Substance: PREDNISONE
  8. ASPIRIN [Concomitant]
     Active Substance: ASPIRIN
  9. ATENOLOL [Concomitant]
     Active Substance: ATENOLOL
     Indication: Hypertension

REACTIONS (4)
  - Colitis [Unknown]
  - Diarrhoea [Recovered/Resolved]
  - Defaecation urgency [Recovering/Resolving]
  - Frequent bowel movements [Recovering/Resolving]
